FAERS Safety Report 7347234-4 (Version None)
Quarter: 2011Q1

REPORT INFORMATION
  Report Type: 
  Country: None (occurrence: None)
  Receive Date: 20110311
  Receipt Date: 20110228
  Transmission Date: 20110831
  Serious: No
  Sender: FDA-Public Use
  Company Number: US-ELI_LILLY_AND_COMPANY-US201103000311

PATIENT
  Age: 56 Year
  Sex: Female
  Weight: 90.703 kg

DRUGS (7)
  1. CYMBALTA [Suspect]
     Dosage: 30 MG, DAILY (1/D)
     Dates: start: 20110119
  2. ALPRAZOLAM [Concomitant]
     Indication: SLEEP DISORDER
  3. CYMBALTA [Suspect]
     Dosage: 60 MG, DAILY (1/D)
     Dates: start: 20101001, end: 20110119
  4. LAMICTAL [Concomitant]
     Indication: SLEEP DISORDER
  5. NORTRIPTYLINE [Concomitant]
     Indication: SLEEP DISORDER
  6. CYMBALTA [Suspect]
     Indication: DEPRESSION
     Dosage: 30 MG, DAILY (1/D)
     Dates: start: 20100801, end: 20101001
  7. DEPEN [Concomitant]
     Indication: SLEEP DISORDER

REACTIONS (18)
  - BALANCE DISORDER [None]
  - ABDOMINAL DISCOMFORT [None]
  - SENSORY LOSS [None]
  - REFLUX OESOPHAGITIS [None]
  - HIATUS HERNIA [None]
  - HEPATOMEGALY [None]
  - NAUSEA [None]
  - FALL [None]
  - EMOTIONAL DISTRESS [None]
  - DYSPNOEA [None]
  - DRUG INEFFECTIVE [None]
  - WEIGHT INCREASED [None]
  - PAIN IN EXTREMITY [None]
  - DYSPHAGIA [None]
  - GAIT DISTURBANCE [None]
  - SOCIAL AVOIDANT BEHAVIOUR [None]
  - MOBILITY DECREASED [None]
  - FLATULENCE [None]
